FAERS Safety Report 16245226 (Version 4)
Quarter: 2020Q1

REPORT INFORMATION
  Report Type: Report from Study
  Country: US (occurrence: US)
  Receive Date: 20190426
  Receipt Date: 20200219
  Transmission Date: 20200409
  Serious: Yes (Other)
  Sender: FDA-Public Use
  Company Number: PHEH2019US017510

PATIENT
  Sex: Male

DRUGS (1)
  1. GILENYA [Suspect]
     Active Substance: FINGOLIMOD HYDROCHLORIDE
     Indication: MULTIPLE SCLEROSIS
     Dosage: 0.5 MG, QD
     Route: 048

REACTIONS (8)
  - Hypoaesthesia [Unknown]
  - Red blood cell count decreased [Unknown]
  - Blood electrolytes decreased [Unknown]
  - Myocardial infarction [Unknown]
  - Hypertensive crisis [Unknown]
  - Multiple sclerosis relapse [Unknown]
  - Aneurysm [Unknown]
  - White blood cell count decreased [Unknown]
